FAERS Safety Report 25982574 (Version 1)
Quarter: 2025Q4

REPORT INFORMATION
  Report Type: Spontaneous
  Country: US (occurrence: US)
  Receive Date: 20251031
  Receipt Date: 20251031
  Transmission Date: 20260117
  Serious: No
  Sender: KINDEVA DRUG DELIVERY
  Company Number: US-Kindeva Drug Delivery L.P.-2187641

PATIENT
  Age: 66 Year
  Sex: Male

DRUGS (1)
  1. ALBUTEROL SULFATE [Suspect]
     Active Substance: ALBUTEROL SULFATE
     Indication: Pulmonary sarcoidosis
     Dates: start: 20251001

REACTIONS (3)
  - Dyspnoea [Unknown]
  - Product dose omission issue [Unknown]
  - Drug delivery system malfunction [Unknown]

NARRATIVE: CASE EVENT DATE: 20251012
